FAERS Safety Report 12138360 (Version 2)
Quarter: 2016Q1

REPORT INFORMATION
  Report Type: Spontaneous
  Country: IT (occurrence: IT)
  Receive Date: 20160302
  Receipt Date: 20160303
  Transmission Date: 20160526
  Serious: Yes (Life-Threatening, Other)
  Sender: FDA-Public Use
  Company Number: PHHY2016IT019288

PATIENT
  Age: 62 Year
  Sex: Female

DRUGS (3)
  1. MUSCORIL [Suspect]
     Active Substance: THIOCOLCHICOSIDE
     Indication: SCIATICA
     Dosage: 1 DF, PRN
     Route: 030
     Dates: start: 20160209, end: 20160209
  2. VOLTAREN [Suspect]
     Active Substance: DICLOFENAC SODIUM
     Indication: SCIATICA
     Dosage: 1 DF, PRN
     Route: 030
     Dates: start: 20160209, end: 20160209
  3. KARVEA [Concomitant]
     Active Substance: IRBESARTAN
     Indication: HYPERTENSION
     Dosage: 1 DF, UNK
     Route: 048

REACTIONS (9)
  - Gastrointestinal disorder [Recovered/Resolved]
  - Pruritus [Recovered/Resolved]
  - Diarrhoea [Recovered/Resolved]
  - Chills [Recovered/Resolved]
  - Hypersensitivity [Unknown]
  - Incorrect route of drug administration [Unknown]
  - Hypotension [Recovered/Resolved]
  - Circulatory collapse [Unknown]
  - Wrong technique in product usage process [Unknown]

NARRATIVE: CASE EVENT DATE: 20160209
